FAERS Safety Report 7323084-X (Version None)
Quarter: 2011Q1

REPORT INFORMATION
  Report Type: 
  Country: None (occurrence: None)
  Receive Date: 20110216
  Receipt Date: 20110201
  Transmission Date: 20110831
  Serious: Yes (Other)
  Sender: FDA-Public Use
  Company Number: AUR-APL-2011-00488

PATIENT
  Age: 61 Year
  Sex: Female

DRUGS (7)
  1. TRAMADOL [Suspect]
  2. LIPITOR [Suspect]
  3. DARIFENACIN [Suspect]
  4. HYDROXYZINE [Suspect]
  5. AMITRIPTYLINE HCL [Suspect]
  6. TOPIRAMATE [Suspect]
  7. TRAZODONE [Suspect]

REACTIONS (1)
  - HEPATIC ENZYME INCREASED [None]
